FAERS Safety Report 9206236 (Version 1)
Quarter: 2013Q2

REPORT INFORMATION
  Report Type: Spontaneous
  Country: US (occurrence: None)
  Receive Date: 20130401
  Receipt Date: 20130401
  Transmission Date: 20140414
  Serious: Yes (Hospitalization)
  Sender: FDA-Public Use
  Company Number: 2013US001395

PATIENT
  Age: 58 Year
  Sex: Male
  Weight: 123 kg

DRUGS (9)
  1. ICLUSIG [Suspect]
     Indication: CHRONIC MYELOID LEUKAEMIA
     Route: 048
     Dates: start: 20130118
  2. MIRALAX [Concomitant]
  3. ALLOPURINOL [Concomitant]
  4. FLUCONAZOLE (FLUCONAZOLE) [Concomitant]
  5. ACETAMINOPHEN ER (ACETAMINOPHEN) [Concomitant]
  6. CITALOPRAM (CITALOPRAM) [Concomitant]
  7. AMLODIPINE (AMLODIPINE) [Concomitant]
  8. TRAMADOL HYDROCHLORIDE (TRAMADOL HYDROCHLORIDE) [Concomitant]
  9. CIPROFLOXACIN (CIPROFLOXACIN) [Concomitant]

REACTIONS (2)
  - Kidney enlargement [None]
  - Constipation [None]
